FAERS Safety Report 8246322-8 (Version None)
Quarter: 2012Q1

REPORT INFORMATION
  Report Type: 
  Country: None (occurrence: None)
  Receive Date: 20120330
  Receipt Date: 20120327
  Transmission Date: 20120608
  Serious: No
  Sender: FDA-Public Use
  Company Number: US-BAYER-2012-030098

PATIENT
  Age: 36 Year
  Sex: Female
  Weight: 70 kg

DRUGS (4)
  1. CORTISONE [Concomitant]
     Dosage: UNK
     Dates: start: 20120313
  2. OXYCODONE HCL [Concomitant]
     Indication: BACK PAIN
     Dosage: UNK UNK, QD
  3. NUMBING AGENT USED FOR A FILLING [Concomitant]
     Indication: ORTHODONTIC PROCEDURE
     Dosage: UNK
     Dates: start: 20120315, end: 20120315
  4. CIPROFLOXACIN HCL [Suspect]

REACTIONS (1)
  - HYPERSENSITIVITY [None]
